FAERS Safety Report 12923891 (Version 1)
Quarter: 2016Q4

REPORT INFORMATION
  Report Type: Report from Study
  Country: None (occurrence: BR)
  Receive Date: 20161108
  Receipt Date: 20161108
  Transmission Date: 20170207
  Serious: Yes (Other)
  Sender: FDA-Public Use
  Company Number: BR-ABBVIE-16K-020-1772351-00

PATIENT
  Age: 59 Year
  Sex: Female
  Weight: 53.2 kg

DRUGS (6)
  1. LEFLUNOMIDE. [Concomitant]
     Active Substance: LEFLUNOMIDE
     Indication: ARTHRITIS
     Route: 048
     Dates: end: 20161024
  2. HUMIRA [Suspect]
     Active Substance: ADALIMUMAB
     Indication: RHEUMATOID ARTHRITIS
     Route: 058
     Dates: start: 20141201
  3. OMEPRAZOLE. [Concomitant]
     Active Substance: OMEPRAZOLE
     Indication: GASTRITIS
     Route: 048
  4. LOSARTAN. [Concomitant]
     Active Substance: LOSARTAN
     Indication: HYPERTENSION
     Route: 048
     Dates: start: 2008
  5. ARCOXIA [Concomitant]
     Active Substance: ETORICOXIB
     Indication: ARTHRITIS
     Dosage: PATIENT WILL TAKE THE MEDICATION UNTIL 24-NOV-2016
     Route: 048
     Dates: start: 20161024
  6. OMEPRAZOLE. [Concomitant]
     Active Substance: OMEPRAZOLE
     Indication: OESOPHAGITIS

REACTIONS (8)
  - Computerised tomogram thorax abnormal [Recovered/Resolved]
  - Rheumatoid arthritis [Recovering/Resolving]
  - Musculoskeletal disorder [Recovering/Resolving]
  - Red blood cell sedimentation rate abnormal [Unknown]
  - Road traffic accident [Unknown]
  - Lung disorder [Recovered/Resolved]
  - Paraesthesia [Recovering/Resolving]
  - Muscular weakness [Recovering/Resolving]

NARRATIVE: CASE EVENT DATE: 201610
